FAERS Safety Report 15917315 (Version 1)
Quarter: 2019Q1

REPORT INFORMATION
  Report Type: Spontaneous
  Country: US (occurrence: US)
  Receive Date: 20190115
  Receipt Date: 20190115
  Transmission Date: 20190417
  Serious: No
  Sender: FDA-Public Use
  Company Number: None

PATIENT
  Age: 70 Year
  Sex: Female
  Weight: 72.12 kg

DRUGS (3)
  1. ZOLEDRONIC ACID [Suspect]
     Active Substance: ZOLEDRONIC ACID
     Indication: SENILE OSTEOPOROSIS
  2. ZOLEDRONIC ACID [Suspect]
     Active Substance: ZOLEDRONIC ACID
     Indication: FIBROMYALGIA
  3. ZOLEDRONIC ACID 5 MG/100 ML [Suspect]
     Active Substance: ZOLEDRONIC ACID
     Indication: BACK PAIN
     Dosage: INFUSE 5MG INTRAVENOUSLY OVER NO LESS THAN 15 MINS EVERY YEAR AS DIRECTED
     Route: 042
     Dates: start: 201812

REACTIONS (1)
  - Migraine [None]
